FAERS Safety Report 7560717-7 (Version None)
Quarter: 2011Q2

REPORT INFORMATION
  Report Type: 
  Country: None (occurrence: None)
  Receive Date: 20110621
  Receipt Date: 20110616
  Transmission Date: 20111010
  Serious: No
  Sender: FDA-Public Use
  Company Number: US-PFIZER INC-2011133742

PATIENT
  Age: 65 Year
  Sex: Female

DRUGS (2)
  1. PLANT STEROLS [Suspect]
  2. LIPITOR [Suspect]
     Dosage: UNK
     Dates: end: 20090101

REACTIONS (2)
  - RASH [None]
  - MUSCULOSKELETAL PAIN [None]
